FAERS Safety Report 4932213-4 (Version None)
Quarter: 2006Q1

REPORT INFORMATION
  Report Type: 
  Country: None (occurrence: None)
  Receive Date: 20060228
  Receipt Date: 20060213
  Transmission Date: 20060701
  Serious: Yes (Life-Threatening, Hospitalization, Other)
  Sender: FDA-Public Use
  Company Number: 2006-00076

PATIENT
  Age: 53 Year
  Sex: Male

DRUGS (1)
  1. VELCADE [Suspect]
     Indication: MULTIPLE MYELOMA
     Dosage: 0.70 MG/M2, INTRAVENOUS
     Route: 042
     Dates: start: 20050901, end: 20051130

REACTIONS (2)
  - GUILLAIN-BARRE SYNDROME [None]
  - SEPSIS [None]
